FAERS Safety Report 12137461 (Version 2)
Quarter: 2016Q2

REPORT INFORMATION
  Report Type: Spontaneous
  Country: BR (occurrence: BR)
  Receive Date: 20160302
  Receipt Date: 20160505
  Transmission Date: 20160815
  Serious: Yes (Hospitalization)
  Sender: FDA-Public Use
  Company Number: BR-PFIZER INC-2016129437

PATIENT
  Age: 59 Year
  Sex: Male
  Weight: 70 kg

DRUGS (11)
  1. CONCOR [Concomitant]
     Active Substance: BISOPROLOL FUMARATE
     Indication: BLOOD PRESSURE INCREASED
     Dosage: ONE TABLET (5 MG), PER DAY
     Dates: start: 201509
  2. EFFEXOR XR [Suspect]
     Active Substance: VENLAFAXINE HYDROCHLORIDE
     Dosage: UNK
     Dates: start: 201512
  3. EFFEXOR XR [Suspect]
     Active Substance: VENLAFAXINE HYDROCHLORIDE
     Indication: DEPRESSION
     Dosage: ONE CAPSULE (150MG), IN THE MORNING; ONE CAPSULE (75MG), AT NIGHT
     Dates: start: 2003, end: 201504
  4. PANTOPRAZOLE [Concomitant]
     Active Substance: PANTOPRAZOLE SODIUM
     Indication: GASTRITIS
     Dosage: 1 UNIT (UNSPECIFIED DOSE), DAILY
     Dates: start: 2015
  5. ASPIRINA [Concomitant]
     Active Substance: ASPIRIN
     Indication: PROPHYLAXIS
     Dosage: 1 TABLET (UNSPECIFIED DOSE), DAILY
     Route: 048
     Dates: start: 201508
  6. REMERON [Concomitant]
     Active Substance: MIRTAZAPINE
     Indication: DEPRESSION
     Dosage: UNK
     Dates: start: 2008
  7. DIOVAN [Concomitant]
     Active Substance: VALSARTAN
     Indication: BLOOD PRESSURE MEASUREMENT
     Dosage: UNK
  8. DIOVAN HCT [Concomitant]
     Active Substance: HYDROCHLOROTHIAZIDE\VALSARTAN
     Indication: BLOOD PRESSURE INCREASED
     Dosage: 1 TABLET (UNSPECIFIED DOSE), DAILY
     Dates: start: 2008
  9. FAMOX [Concomitant]
     Indication: GASTRITIS
     Dosage: UNK
  10. CRESTOR [Concomitant]
     Active Substance: ROSUVASTATIN CALCIUM
     Indication: BLOOD CHOLESTEROL ABNORMAL
     Dosage: 1 TABLET (UNSPECIFIED DOSE), DAILY
  11. SYNTHROID [Concomitant]
     Active Substance: LEVOTHYROXINE SODIUM
     Indication: THYROID DISORDER
     Dosage: 1 UNIT (UNSPECIFIED DOSE), DAILY
     Dates: start: 2011

REACTIONS (10)
  - Sepsis [Recovered/Resolved]
  - Septic shock [Recovered/Resolved]
  - Renal failure [Recovered/Resolved]
  - Gastrointestinal injury [Recovered/Resolved]
  - Post procedural complication [Recovered/Resolved]
  - Renal neoplasm [Recovered/Resolved]
  - Gastrointestinal ulcer [Recovered/Resolved]
  - Klebsiella infection [Recovered/Resolved]
  - Pneumonia [Recovered/Resolved]
  - Depression [Recovered/Resolved]

NARRATIVE: CASE EVENT DATE: 201502
